FAERS Safety Report 8919291 (Version 1)
Quarter: 2012Q4

REPORT INFORMATION
  Report Type: 
  Country: FR (occurrence: FR)
  Receive Date: 20121121
  Receipt Date: 20121121
  Transmission Date: 20130627
  Serious: Yes (Death, Hospitalization, Other)
  Sender: FDA-Public Use
  Company Number: FR-PFIZER INC-2012288179

PATIENT
  Age: 61 Year
  Sex: Male

DRUGS (3)
  1. SUNITINIB MALATE [Suspect]
     Indication: RENAL CELL CARCINOMA
     Dosage: 50 mg, daily, 4 weeks followed by 2 weeks without treatment
     Route: 048
     Dates: start: 200906
  2. SUNITINIB MALATE [Suspect]
     Dosage: 25 mg, daily (for 3 days and then to stop for 3 days)
     Route: 048
  3. SUNITINIB MALATE [Suspect]
     Dosage: 25 mg, daily
     Route: 048

REACTIONS (1)
  - Organising pneumonia [Fatal]
